FAERS Safety Report 12707147 (Version 1)
Quarter: 2016Q3

REPORT INFORMATION
  Report Type: Report from Study
  Country: MX (occurrence: MX)
  Receive Date: 20160901
  Receipt Date: 20160901
  Transmission Date: 20161109
  Serious: Yes (Other)
  Sender: FDA-Public Use
  Company Number: PHHY2016MX118971

PATIENT
  Sex: Female

DRUGS (2)
  1. EXFORGE [Suspect]
     Active Substance: AMLODIPINE BESYLATE\VALSARTAN
     Indication: PRODUCT USED FOR UNKNOWN INDICATION
     Dosage: 4 DF (AMLODIPINE 5 MG, VALSARTAN 160 MG), QD
     Route: 065
  2. GALVUS [Suspect]
     Active Substance: VILDAGLIPTIN
     Indication: PRODUCT USED FOR UNKNOWN INDICATION
     Dosage: 4 DF, QD
     Route: 065

REACTIONS (6)
  - Fatigue [Unknown]
  - Malaise [Unknown]
  - Depression [Unknown]
  - Facial paralysis [Unknown]
  - Product use issue [Not Recovered/Not Resolved]
  - Diabetes mellitus [Unknown]
